FAERS Safety Report 22273517 (Version 1)
Quarter: 2023Q2

REPORT INFORMATION
  Report Type: Spontaneous
  Country: US (occurrence: US)
  Receive Date: 20230502
  Receipt Date: 20230502
  Transmission Date: 20230721
  Serious: Yes (Hospitalization, Disabling)
  Sender: FDA-Public Use
  Company Number: US-SANOFI-01595952

PATIENT
  Sex: Male

DRUGS (1)
  1. DUPIXENT [Suspect]
     Active Substance: DUPILUMAB
     Indication: Eosinophilic oesophagitis
     Dosage: UNK UNK, QW

REACTIONS (4)
  - Loss of personal independence in daily activities [Unknown]
  - Skin burning sensation [Unknown]
  - Connective tissue disorder [Unknown]
  - Hypoaesthesia oral [Unknown]
